FAERS Safety Report 10409480 (Version 1)
Quarter: 2014Q2

REPORT INFORMATION
  Report Type: Spontaneous
  Country: US (occurrence: None)
  Receive Date: 20140604
  Receipt Date: 20140604
  Transmission Date: 20141212
  Serious: Yes (Other)
  Sender: FDA-Public Use
  Company Number: 163-POMAL-14024105

PATIENT
  Age: 61 Year
  Sex: Female
  Weight: 68.95 kg

DRUGS (15)
  1. POMALYST (POMALIDOMIDE) (4 MILILGRAM, CAPSULES) [Suspect]
     Indication: PLASMA CELL MYELOMA
     Route: 048
     Dates: start: 20131027
  2. DEXAMETHASONE(DEXAMETHASONE)(UNKNOWN) [Concomitant]
  3. TRIAMCINOLONE ACETONIDE(TRIAMCINOLONE ACETONIDE)(UNKNOWN) [Concomitant]
  4. ACYCLOVIR(ACICLOVIR)(CAPSULES) [Concomitant]
  5. VITAMIN E(TOCOPHEROL)(CAPSULES) [Concomitant]
  6. FISH OIL(FISH OIL)(UNKNOWN) [Concomitant]
  7. FLAXSEED OIL(LINSEED OIL)(UNKNOWN) [Concomitant]
  8. BABY ASPIRIN(ACETYLSALICYLIC ACID)(UNKNOWN) [Concomitant]
  9. CALCIUM +D(OS-CAL)(UNKNOWN) [Concomitant]
  10. CLARITIN (LORATADINE) (UNKNOWN) [Concomitant]
  11. LEVOTHYROXIN(LEVOTHYROXINE SODIUM)(UNKNOWN) [Concomitant]
  12. MULTIVITAMINS(MULTIVITAMINS)(UNKNOWN) [Concomitant]
  13. PREVACID(LANSOPRAZOLE)(UNKNOWN)? [Concomitant]
  14. SELLENIUM(SELENIUM)(UNKNOWN)? [Concomitant]
  15. VITAMIN C(ASCORBIC ACID)(UNKNOWN) [Concomitant]

REACTIONS (1)
  - Blood cholesterol increased [None]
